FAERS Safety Report 7154719-2 (Version None)
Quarter: 2010Q4

REPORT INFORMATION
  Report Type: 
  Country: None (occurrence: None)
  Receive Date: 20101214
  Receipt Date: 20091106
  Transmission Date: 20110411
  Serious: No
  Sender: FDA-Public Use
  Company Number: US-AMGEN-TCS373500

PATIENT

DRUGS (2)
  1. ENBREL [Suspect]
     Indication: ANKYLOSING SPONDYLITIS
     Dosage: 50 MG, QWK
     Route: 058
  2. VACCINES [Concomitant]
     Dosage: UNK UNK, UNK

REACTIONS (4)
  - NASOPHARYNGITIS [None]
  - PAIN [None]
  - PNEUMONIA [None]
  - SINUSITIS [None]
